FAERS Safety Report 7303645-4 (Version None)
Quarter: 2011Q1

REPORT INFORMATION
  Report Type: 
  Country: None (occurrence: None)
  Receive Date: 20110221
  Receipt Date: 20110211
  Transmission Date: 20110831
  Serious: Yes (Hospitalization)
  Sender: FDA-Public Use
  Company Number: DE-ABBOTT-10P-062-0662080-00

PATIENT
  Sex: Female
  Weight: 61 kg

DRUGS (8)
  1. HUMIRA [Suspect]
     Indication: CROHN'S DISEASE
     Route: 058
     Dates: start: 20090812, end: 20101101
  2. HUMIRA [Suspect]
     Route: 058
     Dates: start: 20110202
  3. AZATHIOPRIN [Concomitant]
     Indication: CROHN'S DISEASE
  4. BUDENOSID [Concomitant]
     Indication: CROHN'S DISEASE
  5. INFLIXIMAB [Concomitant]
     Indication: CROHN'S DISEASE
  6. HORMONE THERAPY [Concomitant]
     Indication: PRODUCT USED FOR UNKNOWN INDICATION
     Route: 062
  7. NOVALGIN [Concomitant]
     Indication: PAIN
     Dates: start: 20010715
  8. VITAMIN B-12 [Concomitant]
     Indication: PRODUCT USED FOR UNKNOWN INDICATION

REACTIONS (14)
  - ILEUS [None]
  - HEADACHE [None]
  - DYSGEUSIA [None]
  - RENAL PAIN [None]
  - ABDOMINAL ADHESIONS [None]
  - RENAL CYST [None]
  - NEPHROLITHIASIS [None]
  - ABDOMINAL PAIN [None]
  - INFLUENZA [None]
  - ADHESIOLYSIS [None]
  - TACHYCARDIA [None]
  - HYPERHIDROSIS [None]
  - SLEEP DISORDER [None]
  - NAUSEA [None]
